FAERS Safety Report 25360102 (Version 3)
Quarter: 2025Q2

REPORT INFORMATION
  Report Type: Report from Study
  Country: US (occurrence: US)
  Receive Date: 20250527
  Receipt Date: 20250612
  Transmission Date: 20250716
  Serious: Yes (Hospitalization, Other)
  Sender: ABBVIE
  Company Number: US-ABBVIE-6296321

PATIENT
  Age: 67 Year
  Sex: Female

DRUGS (2)
  1. RINVOQ [Suspect]
     Active Substance: UPADACITINIB
     Indication: Rheumatoid arthritis
     Route: 048
     Dates: start: 202411, end: 20250215
  2. DEPAKOTE [Concomitant]
     Active Substance: DIVALPROEX SODIUM
     Indication: Seizure

REACTIONS (19)
  - Encephalitis [Recovering/Resolving]
  - Aphasia [Recovering/Resolving]
  - Delusion [Recovering/Resolving]
  - Rheumatoid arthritis [Not Recovered/Not Resolved]
  - Mobility decreased [Unknown]
  - Influenza [Recovered/Resolved]
  - Encephalopathy [Unknown]
  - Fatigue [Unknown]
  - Headache [Unknown]
  - Hemiplegic migraine [Not Recovered/Not Resolved]
  - Sjogren^s syndrome [Unknown]
  - Dehydration [Recovering/Resolving]
  - Disorientation [Recovering/Resolving]
  - Fall [Unknown]
  - Illness [Unknown]
  - Patient restraint [Unknown]
  - Blood sodium decreased [Recovering/Resolving]
  - Confusional state [Recovering/Resolving]
  - Arthralgia [Unknown]

NARRATIVE: CASE EVENT DATE: 20250101
